FAERS Safety Report 4821322-6 (Version None)
Quarter: 2005Q4

REPORT INFORMATION
  Report Type: 
  Country: None (occurrence: None)
  Receive Date: 20051107
  Receipt Date: 20050812
  Transmission Date: 20060501
  Serious: No
  Sender: FDA-Public Use
  Company Number: US-GLAXOSMITHKLINE-A0570077A

PATIENT
  Sex: Female

DRUGS (8)
  1. AVANDAMET [Suspect]
     Dosage: 1TAB PER DAY
     Route: 048
     Dates: start: 20050701
  2. LIPITOR [Concomitant]
  3. TOPROL-XL [Concomitant]
  4. IMDUR [Concomitant]
  5. ZESTRIL [Concomitant]
  6. COUMADIN [Concomitant]
  7. ASPIRIN [Concomitant]
  8. LASIX [Concomitant]

REACTIONS (4)
  - BLOOD GLUCOSE INCREASED [None]
  - DRUG INEFFECTIVE [None]
  - FATIGUE [None]
  - HOT FLUSH [None]
